FAERS Safety Report 21108433 (Version 1)
Quarter: 2022Q3

REPORT INFORMATION
  Report Type: Spontaneous
  Country: US (occurrence: US)
  Receive Date: 20220721
  Receipt Date: 20220721
  Transmission Date: 20221027
  Serious: Yes (Hospitalization, Other)
  Sender: FDA-Public Use
  Company Number: US-SUN PHARMACEUTICAL INDUSTRIES LTD-2022R1-344983

PATIENT
  Age: 10 Year
  Sex: Male

DRUGS (8)
  1. PREDNISONE [Suspect]
     Active Substance: PREDNISONE
     Indication: Immunosuppression
     Dosage: 15 MILLIGRAM, DAILY
     Route: 065
  2. PREDNISONE [Suspect]
     Active Substance: PREDNISONE
     Dosage: 10 MILLIGRAM, DAILY
     Route: 065
  3. PREDNISONE [Suspect]
     Active Substance: PREDNISONE
     Dosage: 3.5 MILLIGRAM, DAILY
     Route: 065
  4. PREDNISONE [Suspect]
     Active Substance: PREDNISONE
     Dosage: 7.5 MILLIGRAM, DAILY
     Route: 065
  5. PREDNISONE [Suspect]
     Active Substance: PREDNISONE
     Dosage: 30 MILLIGRAM, DAILY
     Route: 065
  6. MYCOPHENOLATE MOFETIL [Suspect]
     Active Substance: MYCOPHENOLATE MOFETIL
     Indication: Immunosuppression
     Dosage: 1000 MILLIGRAM, BID
     Route: 065
  7. TACROLIMUS [Suspect]
     Active Substance: TACROLIMUS
     Indication: Immunosuppression
     Dosage: 2.5 MILLIGRAM, BID
     Route: 065
  8. SOLU-MEDROL [Suspect]
     Active Substance: METHYLPREDNISOLONE SODIUM SUCCINATE
     Indication: Product used for unknown indication
     Dosage: UNK
     Route: 065

REACTIONS (2)
  - Meningitis cryptococcal [Unknown]
  - Immune reconstitution inflammatory syndrome [Unknown]
